FAERS Safety Report 6457101-6 (Version None)
Quarter: 2009Q4

REPORT INFORMATION
  Report Type: 
  Country: None (occurrence: None)
  Receive Date: 20091125
  Receipt Date: 20091120
  Transmission Date: 20100525
  Serious: Yes (Life-Threatening)
  Sender: FDA-Public Use
  Company Number: B0597197A

PATIENT
  Age: 47 Year
  Sex: Male

DRUGS (2)
  1. SULTANOL [Suspect]
     Route: 065
     Dates: start: 20090919, end: 20090922
  2. CLAVAMOX [Concomitant]
     Route: 065
     Dates: start: 20090919, end: 20090926

REACTIONS (9)
  - COMMUNICATION DISORDER [None]
  - DYSPNOEA [None]
  - LIP SWELLING [None]
  - OROPHARYNGEAL BLISTERING [None]
  - PRURITUS [None]
  - RASH PAPULAR [None]
  - RASH PUSTULAR [None]
  - SWELLING FACE [None]
  - SWOLLEN TONGUE [None]
